FAERS Safety Report 9210497 (Version 2)
Quarter: 2013Q4

REPORT INFORMATION
  Report Type: Spontaneous
  Country: US (occurrence: US)
  Receive Date: 20130404
  Receipt Date: 20131206
  Transmission Date: 20140711
  Serious: Yes (Other)
  Sender: FDA-Public Use
  Company Number: US-BAYER-2013-040716

PATIENT
  Age: 20 Year
  Sex: Female

DRUGS (9)
  1. YASMIN [Suspect]
     Dosage: UNK
     Dates: start: 200901
  2. YAZ [Suspect]
     Dosage: UNK
     Dates: start: 200901
  3. ZOLOFT [Concomitant]
     Dosage: 50 MG, TAKE 1.5 TABLETS DAILY
     Route: 048
  4. METRONIDAZOLE [Concomitant]
     Dosage: 500 MG, TWICE A DAY
     Route: 048
  5. MAXALT [Concomitant]
     Indication: HEADACHE
     Dosage: 10 MG, PLACE ONE TABLET ON TONGUE P.R.N
  6. MOTRIN [Concomitant]
     Indication: PAIN
     Dosage: 600 MG, EVERY 6 HOURS AS NEEDED
     Route: 048
  7. AMOXICILLIN [Concomitant]
     Dosage: 250/5 ML, UNK
  8. HYDROCODONE W/ACETAMINOPHEN [Concomitant]
     Dosage: 7.5/500 MG UNK
  9. METROGEL [Concomitant]
     Dosage: UNK, FOR 5 NIGHTS

REACTIONS (5)
  - Gallbladder injury [None]
  - Cholelithiasis [None]
  - Pain [None]
  - Injury [None]
  - Pain [None]
